FAERS Safety Report 5723215-9 (Version None)
Quarter: 2008Q2

REPORT INFORMATION
  Report Type: 
  Country: None (occurrence: None)
  Receive Date: 20080430
  Receipt Date: 20080425
  Transmission Date: 20081010
  Serious: Yes (Disabling)
  Sender: FDA-Public Use
  Company Number: FR-BRISTOL-MYERS SQUIBB COMPANY-14168033

PATIENT
  Age: 47 Year
  Sex: Female

DRUGS (5)
  1. PRAVASTATINE ZYDUS [Suspect]
     Indication: PROPHYLAXIS
     Dosage: 1 TABLET/DAY
     Route: 048
     Dates: start: 20071015, end: 20080315
  2. PAROXETINE HCL [Concomitant]
     Route: 048
  3. XANAX [Concomitant]
     Route: 048
  4. TRIATEC [Concomitant]
     Route: 048
  5. INSULINE [Concomitant]
     Indication: DIABETES MELLITUS
     Dosage: 1 DOSAGE FORM = 20 U
     Route: 058

REACTIONS (1)
  - EPICONDYLITIS [None]
